FAERS Safety Report 9001348 (Version 1)
Quarter: 2013Q1

REPORT INFORMATION
  Report Type: Spontaneous
  Country: US (occurrence: US)
  Receive Date: 20130107
  Receipt Date: 20130107
  Transmission Date: 20140127
  Serious: Yes (Other)
  Sender: FDA-Public Use
  Company Number: PHEH2012US024248

PATIENT
  Sex: Female

DRUGS (3)
  1. EXJADE [Suspect]
     Indication: IRON OVERLOAD
     Dosage: 500 MG, QD
     Route: 048
     Dates: start: 20120524, end: 20121206
  2. VORICONAZOLE [Suspect]
     Dosage: 200 MG, BID
     Dates: start: 20120928
  3. CYCLOSPORIN [Concomitant]

REACTIONS (5)
  - Pulmonary mass [Unknown]
  - Feeling hot [Recovered/Resolved]
  - Blood pressure increased [Recovered/Resolved]
  - Renal disorder [Unknown]
  - Blood creatinine increased [Unknown]
